FAERS Safety Report 25404386 (Version 1)
Quarter: 2025Q2

REPORT INFORMATION
  Report Type: Spontaneous
  Country: US (occurrence: US)
  Receive Date: 20250606
  Receipt Date: 20250606
  Transmission Date: 20250716
  Serious: No
  Sender: AMGEN
  Company Number: US-AMGEN-USASP2025109571

PATIENT
  Age: 52 Year
  Sex: Female

DRUGS (4)
  1. ENBREL [Suspect]
     Active Substance: ETANERCEPT
     Indication: Product used for unknown indication
     Dosage: 50 MILLIGRAM, QWK
     Route: 065
     Dates: start: 202504
  2. TRULICITY [Concomitant]
     Active Substance: DULAGLUTIDE
     Route: 065
  3. OZEMPIC [Concomitant]
     Active Substance: SEMAGLUTIDE
     Route: 065
  4. MOUNJARO [Concomitant]
     Active Substance: TIRZEPATIDE
     Route: 065

REACTIONS (6)
  - Physiotherapy [Unknown]
  - Injection site haemorrhage [Unknown]
  - Device use confusion [Unknown]
  - Device difficult to use [Unknown]
  - Accidental exposure to product [Unknown]
  - Incorrect dose administered by device [Unknown]

NARRATIVE: CASE EVENT DATE: 20250101
